FAERS Safety Report 12724079 (Version 1)
Quarter: 2016Q3

REPORT INFORMATION
  Report Type: Spontaneous
  Country: US (occurrence: US)
  Receive Date: 20160908
  Receipt Date: 20160908
  Transmission Date: 20161109
  Serious: No
  Sender: FDA-Public Use
  Company Number: US-MISSION PHARMACAL COMPANY-1057159

PATIENT
  Age: 53 Year
  Sex: Female

DRUGS (1)
  1. THIOLA [Suspect]
     Active Substance: TIOPRONIN
     Indication: CYSTINURIA
     Route: 065
     Dates: start: 20160626

REACTIONS (7)
  - Muscle spasms [Unknown]
  - Headache [Unknown]
  - Abdominal pain upper [Unknown]
  - Abdominal distension [Unknown]
  - Nausea [Unknown]
  - Drug dose omission [Unknown]
  - Epigastric discomfort [Unknown]
